FAERS Safety Report 10672466 (Version 1)
Quarter: 2014Q4

REPORT INFORMATION
  Report Type: Spontaneous
  Country: US (occurrence: None)
  Receive Date: 20141222
  Receipt Date: 20141222
  Transmission Date: 20150529
  Serious: Yes (Other)
  Sender: FDA-Public Use
  Company Number: None

PATIENT
  Age: 23 Year
  Sex: Female
  Weight: 54.43 kg

DRUGS (1)
  1. AMPHETAMINE SALT [Suspect]
     Active Substance: AMPHETAMINE ASPARTATE\AMPHETAMINE SULFATE\DEXTROAMPHETAMINE SACCHARATE\DEXTROAMPHETAMINE SULFATE
     Indication: ATTENTION DEFICIT/HYPERACTIVITY DISORDER
     Dosage: 1 CAPSULE, ONCE DAILY, TAKEN BY MOUTH
     Route: 048
     Dates: start: 20141217, end: 20141220

REACTIONS (14)
  - Drug ineffective [None]
  - Confusional state [None]
  - Product substitution issue [None]
  - Dizziness [None]
  - Mood swings [None]
  - Hypoaesthesia [None]
  - Depression [None]
  - Palpitations [None]
  - Suicidal ideation [None]
  - Anger [None]
  - Tic [None]
  - Tremor [None]
  - Insomnia [None]
  - Product quality issue [None]

NARRATIVE: CASE EVENT DATE: 20141218
